FAERS Safety Report 15405075 (Version 1)
Quarter: 2018Q3

REPORT INFORMATION
  Report Type: Spontaneous
  Country: GB (occurrence: GB)
  Receive Date: 20180920
  Receipt Date: 20180920
  Transmission Date: 20181010
  Serious: Yes (Other)
  Sender: FDA-Public Use
  Company Number: GB-CONCORDIA PHARMACEUTICALS INC.-GSH201809-003244

PATIENT
  Age: 92 Year
  Sex: Female

DRUGS (5)
  1. ADALAT CC [Concomitant]
     Active Substance: NIFEDIPINE
  2. ACETAMINOPHEN AND CODEINE [Concomitant]
     Active Substance: ACETAMINOPHEN\CODEINE PHOSPHATE
     Indication: RHEUMATIC DISORDER
     Dosage: 30MG/500MG CAPLET
  3. ATORVASTATIN [Concomitant]
     Active Substance: ATORVASTATIN
  4. PREDNISOLONE. [Suspect]
     Active Substance: PREDNISOLONE
  5. FOLIC ACID. [Concomitant]
     Active Substance: FOLIC ACID

REACTIONS (3)
  - Mood swings [Unknown]
  - Swelling face [Unknown]
  - Pulmonary thrombosis [Unknown]
